FAERS Safety Report 11188714 (Version 1)
Quarter: 2015Q2

REPORT INFORMATION
  Report Type: Report from Study
  Country: US (occurrence: US)
  Receive Date: 20150615
  Receipt Date: 20150615
  Transmission Date: 20150821
  Serious: Yes (Other)
  Sender: FDA-Public Use
  Company Number: US-ROCHE-1561766

PATIENT

DRUGS (2)
  1. RITUXIMAB [Suspect]
     Active Substance: RITUXIMAB
     Indication: PULMONARY ARTERIAL HYPERTENSION
  2. RITUXIMAB [Suspect]
     Active Substance: RITUXIMAB
     Indication: PROPHYLAXIS AGAINST TRANSPLANT REJECTION
     Route: 065

REACTIONS (12)
  - Pericardial effusion [Recovered/Resolved]
  - Haemophilus infection [Recovered/Resolved]
  - Hypertension [Not Recovered/Not Resolved]
  - Oedema peripheral [Recovered/Resolved]
  - Diabetes mellitus [Recovered/Resolved]
  - Asthenia [Recovered/Resolved]
  - Laceration [Recovered/Resolved]
  - Arthralgia [Not Recovered/Not Resolved]
  - Osteoporosis [Not Recovered/Not Resolved]
  - Lobar pneumonia [Recovered/Resolved]
  - Headache [Not Recovered/Not Resolved]
  - Tremor [Not Recovered/Not Resolved]

NARRATIVE: CASE EVENT DATE: 20120801
